FAERS Safety Report 7709051 (Version 2)
Quarter: 2013Q4

REPORT INFORMATION
  Report Type: Report from Study
  Country: US (occurrence: US)
  Receive Date: 20101214
  Receipt Date: 20131023
  Transmission Date: 20140711
  Serious: No
  Sender: FDA-Public Use
  Company Number: US-ASTRAZENECA-2010SE29144

PATIENT
  Sex: Male

DRUGS (1)
  1. CRESTOR [Suspect]
     Route: 048

REACTIONS (5)
  - Abdominal discomfort [Unknown]
  - Exposure via father [Unknown]
  - Feeling abnormal [Unknown]
  - Eye disorder [Unknown]
  - Malaise [Unknown]
